FAERS Safety Report 16397348 (Version 1)
Quarter: 2019Q2

REPORT INFORMATION
  Report Type: Spontaneous
  Country: US (occurrence: US)
  Receive Date: 20190606
  Receipt Date: 20190606
  Transmission Date: 20190711
  Serious: No
  Sender: FDA-Public Use
  Company Number: US-LUPIN PHARMACEUTICALS INC.-2019-02866

PATIENT
  Sex: Male

DRUGS (2)
  1. SILODOSIN CAPSULES, 8 MG [Suspect]
     Active Substance: SILODOSIN
     Indication: PRODUCT USED FOR UNKNOWN INDICATION
     Dosage: UNK, (30 CAPSULE)
     Route: 065
     Dates: start: 20190121
  2. SILODOSIN CAPSULES, 8 MG [Suspect]
     Active Substance: SILODOSIN
     Dosage: UNK ( 90 CAPSULES)
     Route: 065
     Dates: start: 20190419

REACTIONS (1)
  - Drug ineffective [Unknown]
